FAERS Safety Report 9030779 (Version 3)
Quarter: 2014Q3

REPORT INFORMATION
  Report Type: Report from Study
  Country: MX (occurrence: MX)
  Receive Date: 20130123
  Receipt Date: 20140725
  Transmission Date: 20150326
  Serious: Yes (Other)
  Sender: FDA-Public Use
  Company Number: PHHY2013MX005432

PATIENT
  Age: 77 Year
  Sex: Female
  Weight: 53 kg

DRUGS (3)
  1. EXFORGE [Suspect]
     Active Substance: AMLODIPINE BESYLATE\VALSARTAN
     Indication: HYPERTENSION
     Dosage: 1 TABLET (5/160 MG), DAILY
     Route: 048
     Dates: start: 2011, end: 2013
  2. EUTIROX [Concomitant]
     Active Substance: LEVOTHYROXINE SODIUM
     Indication: THYROID DISORDER
     Dosage: 1 DF, DAILY
     Dates: start: 201212
  3. CALTRATE [Concomitant]
     Active Substance: CALCIUM CARBONATE
     Indication: BLOOD CALCIUM
     Dosage: 1 DF, Q48H
     Dates: start: 201212

REACTIONS (4)
  - Loss of consciousness [Recovered/Resolved]
  - Fall [Recovered/Resolved]
  - Weight decreased [Recovered/Resolved]
  - Hypertension [Recovered/Resolved]

NARRATIVE: CASE EVENT DATE: 201207
